FAERS Safety Report 6356887-9 (Version None)
Quarter: 2009Q3

REPORT INFORMATION
  Report Type: 
  Country: None (occurrence: None)
  Receive Date: 20090910
  Receipt Date: 20090910
  Transmission Date: 20100115
  Serious: Yes (Death)
  Sender: FDA-Public Use
  Company Number: None

PATIENT
  Age: 35 Year
  Sex: Male
  Weight: 86.1834 kg

DRUGS (2)
  1. CHANTIX [Suspect]
     Indication: TOBACCO USER
     Dates: start: 20090603, end: 20090822
  2. CITALOPRAM 40MG APOTEX [Suspect]
     Dates: start: 20090403, end: 20090822

REACTIONS (1)
  - COMPLETED SUICIDE [None]
